FAERS Safety Report 5120296-0 (Version None)
Quarter: 2006Q4

REPORT INFORMATION
  Report Type: 
  Country: None (occurrence: None)
  Receive Date: 20061004
  Receipt Date: 20060926
  Transmission Date: 20070319
  Serious: Yes (Other)
  Sender: FDA-Public Use
  Company Number: US-ABBOTT-06P-163-0345006-00

PATIENT
  Sex: Female
  Weight: 67.192 kg

DRUGS (3)
  1. HUMIRA [Suspect]
     Indication: RHEUMATOID ARTHRITIS
     Route: 058
     Dates: start: 20051201, end: 20060808
  2. HUMIRA [Suspect]
     Route: 058
     Dates: start: 20060919
  3. LEFLUNOMIDE [Concomitant]
     Indication: DRUG USE FOR UNKNOWN INDICATION
     Route: 048

REACTIONS (4)
  - BACK PAIN [None]
  - INJECTION SITE PAIN [None]
  - LUMBAR SPINAL STENOSIS [None]
  - TOOTH ABSCESS [None]
